FAERS Safety Report 17791057 (Version 1)
Quarter: 2020Q2

REPORT INFORMATION
  Report Type: Spontaneous
  Country: US (occurrence: US)
  Receive Date: 20200514
  Receipt Date: 20200514
  Transmission Date: 20200714
  Serious: Yes (Hospitalization)
  Sender: FDA-Public Use
  Company Number: None

PATIENT
  Age: 52 Year
  Sex: Male

DRUGS (10)
  1. DOK [Concomitant]
     Active Substance: DOCUSATE SODIUM
  2. CELEXCOXIB [Concomitant]
  3. FLUOXETINE [Concomitant]
     Active Substance: FLUOXETINE HYDROCHLORIDE
  4. NABUMETON [Concomitant]
  5. HYDROCO/APAP [Concomitant]
     Active Substance: ACETAMINOPHEN\HYDROCODONE
  6. ENBREL [Suspect]
     Active Substance: ETANERCEPT
     Indication: RHEUMATOID ARTHRITIS
     Dosage: ?          OTHER FREQUENCY:Q7 DAYS ;?
     Route: 058
     Dates: start: 20191229
  7. GABAPENTIN. [Concomitant]
     Active Substance: GABAPENTIN
  8. METHOCARBAM [Concomitant]
     Active Substance: METHOCARBAMOL
  9. METHOTREXATE. [Concomitant]
     Active Substance: METHOTREXATE
  10. OLIC ACID [Concomitant]

REACTIONS (1)
  - Spinal operation [None]

NARRATIVE: CASE EVENT DATE: 20200511
